FAERS Safety Report 17205005 (Version 2)
Quarter: 2020Q2

REPORT INFORMATION
  Report Type: Spontaneous
  Country: DE (occurrence: DE)
  Receive Date: 20191227
  Receipt Date: 20200522
  Transmission Date: 20200713
  Serious: Yes (Other)
  Sender: FDA-Public Use
  Company Number: DE-TEVA-2019-DE-1160660

PATIENT
  Age: 68 Year
  Sex: Male
  Weight: 65 kg

DRUGS (6)
  1. TAVEGIL [CLEMASTINE] [Concomitant]
     Active Substance: CLEMASTINE
     Indication: CHEMOTHERAPY
     Dosage: IN PARALLEL TO MABTHERA, 6 TIMES EVERY 4 WEEKS
     Route: 065
     Dates: start: 201906, end: 201911
  2. BENDAMUSTINE HYDROCHLORIDE. [Suspect]
     Active Substance: BENDAMUSTINE HYDROCHLORIDE
     Indication: WALDENSTROM^S MACROGLOBULINAEMIA
     Dosage: CYCLIC [6 TIMES EVERY 4 WEEKS ]
     Route: 042
     Dates: start: 201906, end: 201911
  3. MABTHERA [Suspect]
     Active Substance: RITUXIMAB
     Indication: WALDENSTROM^S MACROGLOBULINAEMIA
     Dosage: 690 MG, EVERY 4 WEEKS [6 TIMES EVERY 4 WEEKS.]
     Route: 042
     Dates: start: 201906, end: 201911
  4. PARACETAMOL [Concomitant]
     Active Substance: ACETAMINOPHEN
     Indication: CHEMOTHERAPY
     Dosage: IN PARALLEL TO MABTHERA, 6 TIMES EVERY 4 WEEKS
     Route: 065
     Dates: start: 201906, end: 201911
  5. PREDNISONE. [Concomitant]
     Active Substance: PREDNISONE
     Indication: CHEMOTHERAPY
     Dosage: EVERY 4 WEEKS [IN PARALLEL TO MABTHERA, 6 TIMES EVERY 4 WEEKS ]
     Route: 065
     Dates: start: 201906, end: 201911
  6. ONDANSETRON [Concomitant]
     Active Substance: ONDANSETRON
     Indication: CHEMOTHERAPY
     Dosage: EVERY 4 WEEKS [IN PARALLEL TO MABTHERA, 6 TIMES EVERY 4 WEEKS]
     Route: 065
     Dates: start: 201906, end: 201911

REACTIONS (3)
  - Muscle rupture [Recovered/Resolved]
  - Haemorrhage [Unknown]
  - Skin disorder [Not Recovered/Not Resolved]

NARRATIVE: CASE EVENT DATE: 201910
